FAERS Safety Report 7394906-1 (Version None)
Quarter: 2011Q2

REPORT INFORMATION
  Report Type: 
  Country: None (occurrence: None)
  Receive Date: 20110405
  Receipt Date: 20110328
  Transmission Date: 20111010
  Serious: Yes (Life-Threatening, Hospitalization)
  Sender: FDA-Public Use
  Company Number: B0708778A

PATIENT
  Sex: Male

DRUGS (4)
  1. NIMBEX [Suspect]
     Dosage: 14MG SINGLE DOSE
     Route: 042
     Dates: start: 20100816, end: 20100816
  2. SUFENTA PRESERVATIVE FREE [Concomitant]
     Route: 042
     Dates: start: 20100816, end: 20100816
  3. AUGMENTIN [Suspect]
     Indication: BACTERIAL INFECTION
     Dosage: 2G SINGLE DOSE
     Route: 042
     Dates: start: 20100816, end: 20100816
  4. PROPOFOL [Concomitant]
     Route: 042
     Dates: start: 20100816, end: 20100816

REACTIONS (2)
  - ANAPHYLACTIC SHOCK [None]
  - BLOOD PRESSURE DECREASED [None]
